FAERS Safety Report 20939671 (Version 3)
Quarter: 2022Q2

REPORT INFORMATION
  Report Type: Report from Study
  Country: GB (occurrence: None)
  Receive Date: 20220609
  Receipt Date: 20220627
  Transmission Date: 20220721
  Serious: Yes (Other)
  Sender: FDA-Public Use
  Company Number: GB-ROCHE-3105190

PATIENT
  Age: 55 Year
  Sex: Male

DRUGS (16)
  1. ATEZOLIZUMAB [Suspect]
     Active Substance: ATEZOLIZUMAB
     Indication: Gastric cancer
     Route: 041
     Dates: start: 20220315
  2. FLUOROURACIL [Suspect]
     Active Substance: FLUOROURACIL
     Indication: Gastric cancer
     Route: 042
     Dates: start: 20220315
  3. CISPLATIN [Suspect]
     Active Substance: CISPLATIN
     Indication: Gastric cancer
     Route: 042
     Dates: start: 20220315
  4. TIRAGOLUMAB [Suspect]
     Active Substance: TIRAGOLUMAB
     Indication: Gastric cancer
     Route: 042
     Dates: start: 20220315
  5. CALCIUM CHLORIDE\SODIUM CHLORIDE\SODIUM PHOSPHATE, DIBASIC, ANHYDROUS\ [Concomitant]
     Active Substance: CALCIUM CHLORIDE\SODIUM CHLORIDE\SODIUM PHOSPHATE, DIBASIC, ANHYDROUS\SODIUM PHOSPHATE, MONOBASIC, A
     Dosage: DRUG DOSE FIRST ADMINISTERED IS 1 OTHER ?GIVEN FOR PRPOHYLAXIS IS NO, ONGOING-YES
     Route: 048
  6. BENZYDAMINE [Concomitant]
     Active Substance: BENZYDAMINE
     Dosage: GIVEN FOR PROPHYLAXIS IS NO, ONGOING-YES
     Route: 048
  7. ONDANSETRON [Concomitant]
     Active Substance: ONDANSETRON
     Dosage: GIVEN FOR PROPHYLAXIS IS NO; ONGOING-YES
     Route: 048
  8. CYCLIZINE [Concomitant]
     Active Substance: CYCLIZINE
     Dosage: GIVEN FOR PROPHYLAXIS IS NO; ONGOING -YES
     Route: 048
  9. LANSOPRAZOLE [Concomitant]
     Active Substance: LANSOPRAZOLE
     Dosage: GIVEN FOR PROPHYLAXIS IS NO; ONGOING -YES
     Route: 048
  10. BISOPROLOL [Concomitant]
     Active Substance: BISOPROLOL
     Dosage: GIVEN FOR PROPHYLAXIS IS NO; ONGOING -YES
     Route: 048
  11. TICAGRELOR [Concomitant]
     Active Substance: TICAGRELOR
     Dosage: GIVEN FOR PROPHYLAXIS IS NO; ONGOING -YES
     Route: 048
  12. RAMIPRIL [Concomitant]
     Active Substance: RAMIPRIL
     Dosage: GIVEN FOR PROPHYLAXIS IS NO; ONGOING -YES
     Route: 048
  13. ATORVASTATIN [Concomitant]
     Active Substance: ATORVASTATIN
     Dosage: GIVEN FOR PROPHYLAXIS IS YES; ONGOING -YES
     Route: 048
  14. ASPIRIN [Concomitant]
     Active Substance: ASPIRIN
     Dosage: GIVEN FOR PROPHYLAXIS IS NO; ONGOING -YES
     Route: 048
  15. POTASSIUM CHLORIDE [Concomitant]
     Active Substance: POTASSIUM CHLORIDE
     Dosage: 20 OTHER
     Route: 042
     Dates: start: 20220315
  16. MAGNESIUM SULFATE [Concomitant]
     Active Substance: MAGNESIUM SULFATE
     Dosage: 10 OTHER
     Route: 042
     Dates: start: 20220315

REACTIONS (1)
  - Palatal ulcer [Recovering/Resolving]

NARRATIVE: CASE EVENT DATE: 20220515
